FAERS Safety Report 20753800 (Version 1)
Quarter: 2022Q2

REPORT INFORMATION
  Report Type: Spontaneous
  Country: US (occurrence: None)
  Receive Date: 20220426
  Receipt Date: 20220426
  Transmission Date: 20220720
  Serious: No
  Sender: FDA-Public Use
  Company Number: US-ROCHE-3021612

PATIENT
  Sex: Female

DRUGS (9)
  1. ESBRIET [Suspect]
     Active Substance: PIRFENIDONE
     Indication: Idiopathic pulmonary fibrosis
     Dosage: DAY 1 THROUGH 7: 1 TABLET BY MOUTH THREE TIMES A DAY WITH MEALS DAY 8 THROUGH 14: 2 TABLETS BY MOUTH
     Route: 048
  2. FOSAMAX [Concomitant]
     Active Substance: ALENDRONATE SODIUM
     Dosage: TAKE 1 TABLET BY MOUTH ONCE IN A WEEK MORNING ON AN EMPTY STOMACH WITH WATER REMAIN UPRIGHT FOR 30 M
     Dates: start: 20210804
  3. CALCIUM CARBONATE;MAGNESIUM CARBONATE [Concomitant]
     Dosage: TAKE BY MOUTH 770 MG CALCIUM, 1000 IU OF VITAMIN D3,58 MG MAGNESIUM
     Route: 048
  4. VITAMIN D3 [Concomitant]
     Active Substance: CHOLECALCIFEROL
     Dosage: TAKE 5,000 UNITS BY MOUTH DAILY
     Route: 048
  5. FLONASE [Concomitant]
     Active Substance: FLUTICASONE PROPIONATE
     Dosage: 1 SPRAY IN EACH NOSTRIL DAILY
     Dates: start: 20201027, end: 20211027
  6. HYZAAR [Concomitant]
     Active Substance: HYDROCHLOROTHIAZIDE\LOSARTAN POTASSIUM
     Dosage: 50-12.5 MG PER TABLET TAKE 1 TABLET BY MOUTH ONCE DAILY
     Dates: start: 20211013, end: 20220111
  7. MAGNESIUM OXIDE [Concomitant]
     Active Substance: MAGNESIUM OXIDE
     Dosage: TAKE 250 MG BY MOUTH DAILY
     Route: 048
  8. ALEVE [Concomitant]
     Active Substance: NAPROXEN SODIUM
     Dosage: TAKE 1 CAPSULE BY MOUTH
     Route: 048
  9. PROTONIX [Concomitant]
     Active Substance: PANTOPRAZOLE SODIUM
     Dosage: TAKE 40 MG ONCE DAILY AT 8 AM BY MOUTH
     Route: 048
     Dates: start: 20210704

REACTIONS (3)
  - Abdominal pain upper [Recovered/Resolved]
  - Cough [Unknown]
  - Dyspnoea [Unknown]
